FAERS Safety Report 4829357-4 (Version None)
Quarter: 2005Q4

REPORT INFORMATION
  Report Type: 
  Country: None (occurrence: None)
  Receive Date: 20051028
  Receipt Date: 20050723
  Transmission Date: 20060501
  Serious: No
  Sender: FDA-Public Use
  Company Number: COT_0174_2005

PATIENT
  Age: 64 Year
  Sex: Female
  Weight: 82.5547 kg

DRUGS (14)
  1. VENTAVIS [Suspect]
     Indication: PULMONARY HYPERTENSION
     Dosage: 5 MCG 6XD IH
     Route: 055
     Dates: start: 20050724
  2. PLAQUENIL [Concomitant]
  3. PREDNISONE [Concomitant]
  4. IMDUR [Concomitant]
  5. F.A. [Concomitant]
  6. LASIX [Concomitant]
  7. ZOCOR [Concomitant]
  8. FLEXERIL [Concomitant]
  9. MOBIC [Concomitant]
  10. URISED [Concomitant]
  11. DILTIAZEM HCL [Concomitant]
  12. ASPIRIN [Concomitant]
  13. ATENOLOL [Concomitant]
  14. OXYGEN [Concomitant]

REACTIONS (3)
  - CHEST PAIN [None]
  - PAIN IN EXTREMITY [None]
  - PHARYNGOLARYNGEAL PAIN [None]
